FAERS Safety Report 5584625-6 (Version None)
Quarter: 2008Q1

REPORT INFORMATION
  Report Type: 
  Country: None (occurrence: None)
  Receive Date: 20080103
  Receipt Date: 20071219
  Transmission Date: 20080703
  Serious: Yes (Hospitalization, Other)
  Sender: FDA-Public Use
  Company Number: S07-UKI-06472-01

PATIENT
  Age: 58 Year
  Sex: Male

DRUGS (12)
  1. CITALOPRAM HYDROBROMIDE [Suspect]
     Dosage: 40 MG QD PO
     Route: 048
     Dates: start: 20060101, end: 20071205
  2. TRAMADOL HCL [Suspect]
     Dosage: 100 MG PRN PO
     Route: 048
     Dates: start: 20071119, end: 20071205
  3. BENDROFLUMETHIAZIDE [Concomitant]
  4. CANDESARTAN CILEXETIL [Concomitant]
  5. ETORICOXIB [Concomitant]
  6. FELODIPINE [Concomitant]
  7. FUROSEMIDE [Concomitant]
  8. MOXIFLOXACIN HCL [Concomitant]
  9. PARACETAMOL [Concomitant]
  10. FLOMAX [Concomitant]
  11. THIAMINE [Concomitant]
  12. VITAMIN B COMPLEX CAP [Concomitant]

REACTIONS (4)
  - CELLULITIS [None]
  - CONDITION AGGRAVATED [None]
  - DIARRHOEA [None]
  - SEROTONIN SYNDROME [None]
